FAERS Safety Report 4810019-4 (Version None)
Quarter: 2005Q4

REPORT INFORMATION
  Report Type: 
  Country: None (occurrence: None)
  Receive Date: 20051024
  Receipt Date: 20051010
  Transmission Date: 20060501
  Serious: Yes (Other)
  Sender: FDA-Public Use
  Company Number: 2005-06-1471

PATIENT
  Age: 43 Year
  Sex: Female

DRUGS (3)
  1. NEOCLARITYN (DESLORATADINE)  ^CLARINEX^  TABLETS [Suspect]
     Indication: SEASONAL ALLERGY
     Dosage: ORAL
     Route: 048
     Dates: start: 20050505
  2. FEXOFENADINE HCL [Suspect]
  3. TRILUDAN [Concomitant]

REACTIONS (2)
  - EXTRASYSTOLES [None]
  - TACHYCARDIA [None]
